FAERS Safety Report 21750671 (Version 1)
Quarter: 2022Q4

REPORT INFORMATION
  Report Type: Report from Study
  Country: US (occurrence: US)
  Receive Date: 20221219
  Receipt Date: 20221219
  Transmission Date: 20230113
  Serious: Yes (Hospitalization)
  Sender: FDA-Public Use
  Company Number: US-JAZZ-2022-US-022214

PATIENT
  Age: 43 Year
  Sex: Female

DRUGS (4)
  1. XYWAV [Suspect]
     Active Substance: CALCIUM OXYBATE\MAGNESIUM OXYBATE\POTASSIUM OXYBATE\SODIUM OXYBATE
     Indication: Hypersomnia
     Dosage: UNK
     Route: 048
     Dates: start: 202206
  2. XYWAV [Suspect]
     Active Substance: CALCIUM OXYBATE\MAGNESIUM OXYBATE\POTASSIUM OXYBATE\SODIUM OXYBATE
     Dosage: 3 GRAM, BID
     Route: 048
  3. XYWAV [Suspect]
     Active Substance: CALCIUM OXYBATE\MAGNESIUM OXYBATE\POTASSIUM OXYBATE\SODIUM OXYBATE
     Dosage: 6 GRAM, QD
     Route: 048
  4. CARAFATE [Concomitant]
     Active Substance: SUCRALFATE
     Dosage: UNK, BID

REACTIONS (32)
  - Anxiety [Unknown]
  - Tremor [Unknown]
  - Dyspnoea [Unknown]
  - Mental disorder [Unknown]
  - Illness [Unknown]
  - Heart rate decreased [Unknown]
  - Parosmia [Unknown]
  - Liver disorder [Unknown]
  - Influenza [Unknown]
  - Eating disorder [Unknown]
  - Migraine [Unknown]
  - COVID-19 [Unknown]
  - Paraesthesia [Unknown]
  - Electric shock sensation [Unknown]
  - Withdrawal syndrome [Unknown]
  - Speech disorder [Unknown]
  - Dysphemia [Unknown]
  - Oxygen saturation abnormal [Unknown]
  - Hypoaesthesia [Unknown]
  - Feeling abnormal [Unknown]
  - Nausea [Unknown]
  - Confusional state [Unknown]
  - Weight decreased [Unknown]
  - Vomiting [Unknown]
  - Drug ineffective [Unknown]
  - Diarrhoea [Unknown]
  - Dizziness [Unknown]
  - Disorientation [Unknown]
  - Nervousness [Unknown]
  - Irritability [Unknown]
  - Product dose omission issue [Unknown]
  - Intentional dose omission [Unknown]

NARRATIVE: CASE EVENT DATE: 20221204
